FAERS Safety Report 6175448-8 (Version None)
Quarter: 2009Q2

REPORT INFORMATION
  Report Type: 
  Country: None (occurrence: None)
  Receive Date: 20090429
  Receipt Date: 20090420
  Transmission Date: 20091009
  Serious: Yes (Hospitalization, Other)
  Sender: FDA-Public Use
  Company Number: POMP-1000576

PATIENT
  Age: 6 Month
  Sex: Male

DRUGS (3)
  1. MYOZYME [Suspect]
     Indication: GLYCOGEN STORAGE DISEASE TYPE II
     Dosage: 20 MG/KG, QOW, INTRAVENOUS, 10 MG/KG, QW, INTRAVENOUS
     Route: 042
     Dates: start: 20090424
  2. MILRINONE (MILRINONE) UNKNOWN [Suspect]
  3. DOBUTAMINE HCL [Concomitant]

REACTIONS (4)
  - CARDIOGENIC SHOCK [None]
  - HEART RATE DECREASED [None]
  - MYOCARDIAL INFARCTION [None]
  - RESPIRATORY FAILURE [None]
